FAERS Safety Report 17827747 (Version 1)
Quarter: 2020Q2

REPORT INFORMATION
  Report Type: Spontaneous
  Country: US (occurrence: US)
  Receive Date: 20200527
  Receipt Date: 20200527
  Transmission Date: 20200714
  Serious: No
  Sender: FDA-Public Use
  Company Number: US-TEVA-2020-US-1241530

PATIENT
  Sex: Female

DRUGS (14)
  1. TYLENOL ARTHRITIS 650 MG TABLET SA [Concomitant]
  2. AUSTEDO [Suspect]
     Active Substance: DEUTETRABENAZINE
     Indication: TARDIVE DYSKINESIA
     Dosage: 12 MILLIGRAM DAILY;
     Route: 048
     Dates: start: 201908
  3. PRENATAL MULTIVITAMIN [Concomitant]
  4. NORVASC 10 MG TABLET [Concomitant]
  5. GUAIFENESIN-DM ER [Concomitant]
  6. MELATONIN [Concomitant]
     Active Substance: MELATONIN
  7. METHOCARBAMOL 100 MG/ML VIAL [Concomitant]
  8. BIOTIN, HAIR, SKIN, AND NAILS [Concomitant]
  9. NASOGEL [Concomitant]
  10. SALINE MIST [Concomitant]
     Active Substance: SODIUM CHLORIDE
  11. VITAMIN E [Concomitant]
     Active Substance: .ALPHA.-TOCOPHEROL
  12. VITAMIN B6 [Concomitant]
     Active Substance: PYRIDOXINE HYDROCHLORIDE
  13. VITAMIN C [Concomitant]
     Active Substance: ASCORBIC ACID
  14. ZINC. [Concomitant]
     Active Substance: ZINC

REACTIONS (1)
  - Drug ineffective [Unknown]
